FAERS Safety Report 12831844 (Version 1)
Quarter: 2016Q4

REPORT INFORMATION
  Report Type: Report from Study
  Country: JP (occurrence: JP)
  Receive Date: 20161010
  Receipt Date: 20161010
  Transmission Date: 20170207
  Serious: Yes (Hospitalization)
  Sender: FDA-Public Use
  Company Number: JP-ROCHE-1676470

PATIENT
  Age: 11 Year
  Sex: Female
  Weight: 43.4 kg

DRUGS (18)
  1. PREDONINE [Concomitant]
     Active Substance: PREDNISOLONE\PREDNISOLONE ACETATE\PREDNISOLONE SODIUM SUCCINATE
     Indication: NEPHROTIC SYNDROME
     Dosage: IT IS A MAXIMAL DOSE FOR THE PERIOD: MINIMAL DOSE DURING 30MG/DAY: 30MG/DAY.
     Route: 048
     Dates: start: 200807, end: 20150422
  2. ALDACTONE A [Concomitant]
     Active Substance: SPIRONOLACTONE
     Indication: NEPHROTIC SYNDROME
     Dosage: THE FRACTIONATION DOSE FREQUENCY IS UNCERTAIN.
     Route: 048
  3. PREDONINE [Concomitant]
     Active Substance: PREDNISOLONE\PREDNISOLONE ACETATE\PREDNISOLONE SODIUM SUCCINATE
     Indication: NEPHROTIC SYNDROME
     Dosage: IT IS A MAXIMAL DOSE FOR THE PERIOD: 20MG/DAY.
     Route: 048
     Dates: start: 20150423, end: 20150429
  4. LASIX [Concomitant]
     Active Substance: FUROSEMIDE
     Indication: NEPHROTIC SYNDROME
     Dosage: THE FRACTIONATION DOSE FREQUENCY IS UNCERTAIN.
     Route: 048
  5. CICLOSPORIN [Concomitant]
     Active Substance: CYCLOSPORINE
     Dosage: THE FRACTIONATION DOSE FREQUENCY IS UNCERTAIN.
     Route: 048
     Dates: start: 20080903
  6. DILAZEP DIHYDROCHLORIDE [Concomitant]
     Active Substance: DILAZEP DIHYDROCHLORIDE
     Indication: NEPHROTIC SYNDROME
     Dosage: THE FRACTIONATION DOSE FREQUENCY IS UNCERTAIN.
     Route: 048
  7. PREDONINE [Concomitant]
     Active Substance: PREDNISOLONE\PREDNISOLONE ACETATE\PREDNISOLONE SODIUM SUCCINATE
     Indication: NEPHROTIC SYNDROME
     Dosage: IT IS A MAXIMAL DOSE FOR THE PERIOD: MINIMAL DOSE DURING 30MG/DAY: 0MG/DAY.
     Route: 048
     Dates: start: 20150430
  8. NEORAL [Concomitant]
     Active Substance: CYCLOSPORINE
     Indication: NEPHROTIC SYNDROME
     Dosage: THE FRACTIONATION DOSE FREQUENCY IS UNCERTAIN.
     Route: 048
  9. FAMOTIDINE. [Concomitant]
     Active Substance: FAMOTIDINE
     Indication: PROPHYLAXIS
     Dosage: THE FRACTIONATION DOSE FREQUENCY IS UNCERTAIN.
     Route: 065
  10. WARKMIN [Concomitant]
     Active Substance: ALFACALCIDOL
     Indication: OSTEOPOROSIS
     Dosage: THE FRACTIONATION DOSE FREQUENCY IS UNCERTAIN.
     Route: 048
  11. CALONAL [Concomitant]
     Active Substance: ACETAMINOPHEN
     Dosage: THE FRACTIONATION DOSE FREQUENCY IS UNCERTAIN.
     Route: 048
  12. PRIDOL [Concomitant]
     Active Substance: METHYLPREDNISOLONE SODIUM SUCCINATE
     Dosage: THE FRACTIONATION DOSE FREQUENCY IS UNCERTAIN.
     Route: 042
  13. MYCOPHENOLATE MOFETIL. [Suspect]
     Active Substance: MYCOPHENOLATE MOFETIL
     Indication: NEPHROTIC SYNDROME
     Dosage: THE FRACTIONATION DOSE FREQUENCY IS UNCERTAIN.
     Route: 048
     Dates: start: 201310
  14. SULFAMETHOXAZOLE/TRIMETHOPRIM [Suspect]
     Active Substance: SULFAMETHOXAZOLE\TRIMETHOPRIM
     Indication: PROPHYLAXIS
     Dosage: THE FRACTIONATION DOSE FREQUENCY IS UNCERTAIN.
     Route: 048
     Dates: start: 20150314
  15. PREDONINE [Concomitant]
     Active Substance: PREDNISOLONE\PREDNISOLONE ACETATE\PREDNISOLONE SODIUM SUCCINATE
     Indication: NEPHROTIC SYNDROME
     Dosage: IT IS A MAXIMAL DOSE FOR THE PERIOD: 20MG/DAY.
     Route: 048
     Dates: start: 20150423, end: 20150429
  16. RITUXIMAB [Suspect]
     Active Substance: RITUXIMAB
     Indication: NEPHROTIC SYNDROME
     Route: 041
     Dates: start: 20150409, end: 20150409
  17. POLARAMINE [Concomitant]
     Active Substance: DEXCHLORPHENIRAMINE MALEATE
     Dosage: THE FRACTIONATION DOSE FREQUENCY IS UNCERTAIN.
     Route: 048
  18. FERROMIA [Concomitant]
     Active Substance: FERROUS CITRATE
     Indication: IRON DEFICIENCY ANAEMIA
     Dosage: THE FRACTIONATION DOSE FREQUENCY IS UNCERTAIN.
     Route: 048
     Dates: start: 20150807

REACTIONS (2)
  - Neutropenia [Recovered/Resolved]
  - White blood cell count decreased [Recovered/Resolved]

NARRATIVE: CASE EVENT DATE: 20150724
